FAERS Safety Report 10586805 (Version 2)
Quarter: 2014Q4

REPORT INFORMATION
  Report Type: Report from Study
  Country: US (occurrence: US)
  Receive Date: 20141117
  Receipt Date: 20141222
  Transmission Date: 20150529
  Serious: Yes (Other)
  Sender: FDA-Public Use
  Company Number: US-BEH-2014046289

PATIENT
  Sex: Female
  Weight: 3.05 kg

DRUGS (2)
  1. CYTOGAM [Suspect]
     Active Substance: HUMAN CYTOMEGALOVIRUS IMMUNE GLOBULIN
     Indication: CYTOMEGALOVIRUS INFECTION
     Route: 064
     Dates: start: 20140523, end: 20140926
  2. ALBUMINAR-5 [Suspect]
     Active Substance: ALBUMIN (HUMAN)
     Indication: CYTOMEGALOVIRUS INFECTION
     Route: 064
     Dates: start: 20140523, end: 20140926

REACTIONS (2)
  - Premature baby [Recovered/Resolved]
  - Foetal exposure during pregnancy [Recovered/Resolved]

NARRATIVE: CASE EVENT DATE: 20140523
